FAERS Safety Report 5195108-X (Version None)
Quarter: 2006Q4

REPORT INFORMATION
  Report Type: 
  Country: None (occurrence: None)
  Receive Date: 20061229
  Receipt Date: 20061221
  Transmission Date: 20070319
  Serious: Yes (Hospitalization)
  Sender: FDA-Public Use
  Company Number: GR-ABBOTT-06P-066-0354062-00

PATIENT
  Sex: Male
  Weight: 75 kg

DRUGS (4)
  1. HUMIRA [Suspect]
     Indication: RHEUMATOID ARTHRITIS
     Route: 058
     Dates: start: 20041012, end: 20050901
  2. HUMIRA [Suspect]
     Route: 058
     Dates: start: 20050930
  3. PREDNISOLONE [Concomitant]
     Indication: RHEUMATOID ARTHRITIS
  4. METOPROLOL FUMARATE [Concomitant]
     Indication: HYPERTENSION

REACTIONS (3)
  - CHOLECYSTECTOMY [None]
  - LUNG NEOPLASM [None]
  - PLEURITIC PAIN [None]
